FAERS Safety Report 10561813 (Version 1)
Quarter: 2014Q4

REPORT INFORMATION
  Report Type: Spontaneous
  Country: AU (occurrence: AU)
  Receive Date: 20141103
  Receipt Date: 20141103
  Transmission Date: 20150529
  Serious: Yes (Hospitalization, Other)
  Sender: FDA-Public Use
  Company Number: AU-ABBVIE-14K-008-1299808-00

PATIENT
  Sex: Female

DRUGS (3)
  1. HUMIRA [Suspect]
     Active Substance: ADALIMUMAB
     Route: 065
     Dates: start: 2012, end: 2012
  2. HUMIRA [Suspect]
     Active Substance: ADALIMUMAB
     Indication: CROHN^S DISEASE
     Route: 065
     Dates: start: 201201
  3. HUMIRA [Suspect]
     Active Substance: ADALIMUMAB
     Route: 065
     Dates: start: 201208

REACTIONS (13)
  - Feeding disorder [Recovered/Resolved]
  - Post procedural infection [Recovered/Resolved]
  - Surgery [Recovered/Resolved]
  - Large intestinal obstruction [Recovered/Resolved]
  - Intestinal stenosis [Recovered/Resolved]
  - Intensive care [Recovered/Resolved]
  - Intestinal resection [Recovered/Resolved]
  - Intestinal perforation [Recovered/Resolved]
  - Cholelithiasis [Recovered/Resolved]
  - Infection [Recovered/Resolved]
  - Malnutrition [Recovered/Resolved]
  - Intestinal fistula [Recovered/Resolved]
  - Pain [Recovered/Resolved]

NARRATIVE: CASE EVENT DATE: 2012
